FAERS Safety Report 9124990 (Version 1)
Quarter: 2013Q1

REPORT INFORMATION
  Report Type: Spontaneous
  Country: US (occurrence: US)
  Receive Date: 20130227
  Receipt Date: 20130227
  Transmission Date: 20140127
  Serious: No
  Sender: FDA-Public Use
  Company Number: US-ASTRAZENECA-2013SE05458

PATIENT
  Age: 85 Year
  Sex: Female
  Weight: 68.9 kg

DRUGS (9)
  1. ATENOLOL [Suspect]
     Indication: BLOOD PRESSURE ABNORMAL
     Route: 065
  2. LISINOPRIL [Suspect]
     Indication: BLOOD PRESSURE ABNORMAL
     Route: 048
  3. CRESTOR [Suspect]
     Indication: BLOOD CHOLESTEROL ABNORMAL
     Route: 048
     Dates: start: 201210
  4. CRESTOR [Suspect]
     Indication: BLOOD CHOLESTEROL ABNORMAL
     Route: 048
     Dates: start: 201210, end: 2012
  5. BABY ASPIRIN [Concomitant]
     Indication: MYOCARDIAL INFARCTION
  6. TYLENOL [Concomitant]
     Indication: PAIN
  7. VITAMIN D [Concomitant]
  8. MULTIVITAMIN [Concomitant]
  9. CHOLESTROMINE [Concomitant]
     Indication: BLOOD CHOLESTEROL

REACTIONS (6)
  - Weight increased [Unknown]
  - Decreased appetite [Recovered/Resolved]
  - Muscular weakness [Recovered/Resolved]
  - Dizziness [Recovered/Resolved]
  - Asthenia [Recovered/Resolved]
  - Off label use [Unknown]
